FAERS Safety Report 5008733-3 (Version None)
Quarter: 2006Q2

REPORT INFORMATION
  Report Type: 
  Country: None (occurrence: None)
  Receive Date: 20060523
  Receipt Date: 20060518
  Transmission Date: 20061013
  Serious: Yes (Death, Hospitalization)
  Sender: FDA-Public Use
  Company Number: 2006UW09785

PATIENT
  Age: 11 Year
  Sex: Male

DRUGS (4)
  1. SEROQUEL [Suspect]
     Indication: AFFECTIVE DISORDER
     Route: 048
  2. SEROQUEL [Suspect]
     Indication: ATTENTION DEFICIT/HYPERACTIVITY DISORDER
     Route: 048
  3. ADDERALL 10 [Concomitant]
     Route: 048
  4. XANAX [Concomitant]
     Route: 048

REACTIONS (5)
  - CONVULSION [None]
  - DEATH [None]
  - HYPONATRAEMIA [None]
  - MUSCLE TWITCHING [None]
  - THERAPY NON-RESPONDER [None]
